FAERS Safety Report 18924138 (Version 1)
Quarter: 2021Q1

REPORT INFORMATION
  Report Type: Spontaneous
  Country: ES (occurrence: US)
  Receive Date: 20210222
  Receipt Date: 20210222
  Transmission Date: 20210420
  Serious: Yes (Other)
  Sender: FDA-Public Use
  Company Number: ES-BAYER-2021-062167

PATIENT
  Age: 15 Year
  Sex: Male

DRUGS (1)
  1. SORAFENIB (RAF KINASE INHIBITOR) [Suspect]
     Active Substance: SORAFENIB
     Indication: DESMOID TUMOUR
     Dosage: 200 MG, BID

REACTIONS (7)
  - Skin mass [None]
  - Product administered to patient of inappropriate age [None]
  - Scrotal mass [None]
  - Off label use [None]
  - Scrotal cyst [None]
  - Cyst rupture [None]
  - Product use in unapproved indication [None]
